FAERS Safety Report 7419560-1 (Version None)
Quarter: 2011Q2

REPORT INFORMATION
  Report Type: 
  Country: None (occurrence: None)
  Receive Date: 20110412
  Receipt Date: 20110412
  Transmission Date: 20111010
  Serious: No
  Sender: FDA-Public Use
  Company Number: None

PATIENT
  Sex: Female

DRUGS (1)
  1. CLONIDINE [Suspect]

REACTIONS (4)
  - AGITATION [None]
  - NERVOUSNESS [None]
  - INSOMNIA [None]
  - HEADACHE [None]
